FAERS Safety Report 7257207-8 (Version None)
Quarter: 2011Q1

REPORT INFORMATION
  Report Type: 
  Country: None (occurrence: None)
  Receive Date: 20110129
  Receipt Date: 20100624
  Transmission Date: 20110831
  Serious: No
  Sender: FDA-Public Use
  Company Number: US-ABBOTT-10P-163-0654095-00

PATIENT
  Sex: Male
  Weight: 81.72 kg

DRUGS (4)
  1. TRIAMCINOLONE ACETONIDE [Concomitant]
     Indication: DERMATITIS ALLERGIC
     Route: 061
     Dates: start: 20100501
  2. HUMIRA [Suspect]
     Indication: RHEUMATOID ARTHRITIS
     Route: 058
     Dates: start: 20100609
  3. UNKNOWN EYE DROPS [Concomitant]
     Indication: CATARACT
     Route: 047
  4. TRIAMINCINOLONE [Concomitant]
     Indication: DERMATITIS ALLERGIC
     Route: 061
     Dates: start: 20100501

REACTIONS (3)
  - GAIT DISTURBANCE [None]
  - NAUSEA [None]
  - VISION BLURRED [None]
